FAERS Safety Report 24378675 (Version 1)
Quarter: 2024Q3

REPORT INFORMATION
  Report Type: Report from Study
  Country: US (occurrence: US)
  Receive Date: 20240930
  Receipt Date: 20240930
  Transmission Date: 20241017
  Serious: No
  Sender: ACADIA PHARMACEUTICALS
  Company Number: US-ACADIA PHARMACEUTICALS INC.-ACA-2024-PIM-005631

PATIENT
  Age: 63 Year
  Sex: Male

DRUGS (26)
  1. NUPLAZID [Suspect]
     Active Substance: PIMAVANSERIN TARTRATE
     Indication: Parkinson^s disease
     Dosage: 34 MILLIGRAM, QD
     Route: 048
     Dates: start: 20230528
  2. NUPLAZID [Suspect]
     Active Substance: PIMAVANSERIN TARTRATE
     Indication: Hallucination
  3. QUETIAPINE [Suspect]
     Active Substance: QUETIAPINE
  4. OLANZAPINE [Suspect]
     Active Substance: OLANZAPINE
  5. CARBIDOPA\LEVODOPA [Concomitant]
     Active Substance: CARBIDOPA\LEVODOPA
  6. QUETIAPINE [Concomitant]
     Active Substance: QUETIAPINE
  7. OLANZAPINE [Concomitant]
     Active Substance: OLANZAPINE
  8. PANTOPRAZOLE [Concomitant]
     Active Substance: PANTOPRAZOLE
  9. AMANTADINE [Concomitant]
     Active Substance: AMANTADINE
  10. ENTACAPONE [Concomitant]
     Active Substance: ENTACAPONE
  11. FLOMAX [Concomitant]
     Active Substance: TAMSULOSIN HYDROCHLORIDE
  12. NEUPRO [Concomitant]
     Active Substance: ROTIGOTINE
  13. KLONOPIN [Concomitant]
     Active Substance: CLONAZEPAM
  14. LORATADINE [Concomitant]
     Active Substance: LORATADINE
  15. MELATONIN [Concomitant]
     Active Substance: MELATONIN
  16. CYANOCOBALAMIN [Concomitant]
     Active Substance: CYANOCOBALAMIN
  17. VITAMIN D3 [Concomitant]
     Active Substance: CHOLECALCIFEROL
  18. C [ASCORBIC ACID] [Concomitant]
  19. IBUPROFEN [Concomitant]
     Active Substance: IBUPROFEN
  20. GABAPENTIN [Concomitant]
     Active Substance: GABAPENTIN
  21. ALBUTEROL SULFATE [Concomitant]
     Active Substance: ALBUTEROL SULFATE
  22. TYLENOL [Concomitant]
     Active Substance: ACETAMINOPHEN
  23. TROSPIUM [Concomitant]
     Active Substance: TROSPIUM
  24. APOKYN [Concomitant]
     Active Substance: APOMORPHINE HYDROCHLORIDE
  25. LINZESS [Concomitant]
     Active Substance: LINACLOTIDE
  26. NASACORT [Concomitant]
     Active Substance: TRIAMCINOLONE ACETONIDE

REACTIONS (4)
  - Hand fracture [Recovered/Resolved]
  - Patient elopement [Recovered/Resolved]
  - Fall [Recovered/Resolved]
  - Confusional state [Recovered/Resolved]

NARRATIVE: CASE EVENT DATE: 20240830
